FAERS Safety Report 5223986-4 (Version None)
Quarter: 2007Q1

REPORT INFORMATION
  Report Type: 
  Country: None (occurrence: None)
  Receive Date: 20070130
  Receipt Date: 20070125
  Transmission Date: 20070707
  Serious: Yes (Hospitalization)
  Sender: FDA-Public Use
  Company Number: FR-GLAXOSMITHKLINE-B0455781A

PATIENT
  Age: 65 Year
  Sex: Male

DRUGS (3)
  1. ZELITREX [Suspect]
     Indication: PROPHYLAXIS
     Dosage: 1UNIT TWICE PER DAY
     Route: 048
  2. APRANAX [Suspect]
     Dosage: 1UNIT SINGLE DOSE
     Route: 054
     Dates: start: 20061228, end: 20061228
  3. ATARAX [Suspect]
     Dosage: 75MG PER DAY
     Route: 048

REACTIONS (1)
  - TOXIC SKIN ERUPTION [None]
